FAERS Safety Report 7744312 (Version 3)
Quarter: 2013Q4

REPORT INFORMATION
  Report Type: Spontaneous
  Country: US (occurrence: US)
  Receive Date: 20101230
  Receipt Date: 20131223
  Transmission Date: 20140711
  Serious: Yes (Other)
  Sender: FDA-Public Use
  Company Number: US-BAYER-2010-008691

PATIENT
  Age: 25 Year
  Sex: Female
  Weight: 97.96 kg

DRUGS (4)
  1. YAZ [Suspect]
     Indication: CONTRACEPTION
     Dosage: UNK
     Route: 048
     Dates: start: 20061121, end: 20090928
  2. YAZ [Suspect]
     Indication: ACNE
  3. YAZ [Suspect]
     Indication: PREMENSTRUAL DYSPHORIC DISORDER
  4. OXYCODONE/APAP [Concomitant]

REACTIONS (2)
  - Gallbladder disorder [None]
  - Cholecystitis chronic [None]
